FAERS Safety Report 17768560 (Version 1)
Quarter: 2020Q2

REPORT INFORMATION
  Report Type: Spontaneous
  Country: CN (occurrence: CN)
  Receive Date: 20200512
  Receipt Date: 20200512
  Transmission Date: 20200714
  Serious: Yes (Other)
  Sender: FDA-Public Use
  Company Number: CN-ROCHE-2596814

PATIENT
  Age: 66 Year
  Sex: Female

DRUGS (9)
  1. OXALIPLATIN. [Concomitant]
     Active Substance: OXALIPLATIN
     Indication: RECTAL CANCER
  2. CALCIUM FOLINATE [Concomitant]
     Active Substance: LEUCOVORIN CALCIUM
     Indication: RECTAL CANCER
     Route: 065
     Dates: start: 2019
  3. CETUXIMAB. [Concomitant]
     Active Substance: CETUXIMAB
     Indication: RECTAL CANCER
     Route: 065
     Dates: start: 2019
  4. IRINOTECAN [Concomitant]
     Active Substance: IRINOTECAN
     Indication: RECTAL CANCER
     Route: 065
     Dates: start: 2019
  5. XELODA [Suspect]
     Active Substance: CAPECITABINE
     Indication: RECTAL CANCER
     Route: 048
  6. 5-FLUOROURACIL [FLUOROURACIL] [Concomitant]
     Active Substance: FLUOROURACIL
     Indication: RECTAL CANCER
     Route: 065
     Dates: start: 2019
  7. AVASTIN [Suspect]
     Active Substance: BEVACIZUMAB
     Indication: RECTAL CANCER
     Route: 065
     Dates: start: 20190404
  8. CAMRELIZUMAB [Concomitant]
     Active Substance: CAMRELIZUMAB
     Route: 065
     Dates: start: 20191017
  9. REGORAFENIB. [Concomitant]
     Active Substance: REGORAFENIB
     Indication: RECTAL CANCER
     Route: 048
     Dates: start: 20191017

REACTIONS (2)
  - Diarrhoea [Unknown]
  - Bone marrow failure [Unknown]
